FAERS Safety Report 8407405-2 (Version None)
Quarter: 2012Q2

REPORT INFORMATION
  Report Type: 
  Country: None (occurrence: None)
  Receive Date: 20120323
  Receipt Date: 20111130
  Transmission Date: 20120825
  Serious: Yes (Other)
  Sender: FDA-Public Use
  Company Number: 163-21880-11120197

PATIENT
  Age: 74 Year
  Sex: Female

DRUGS (2)
  1. STEROID (CORTICOSTEROID NOS) [Concomitant]
  2. REVLIMID [Suspect]
     Indication: MULTIPLE MYELOMA
     Dosage: 25 MG, DAILY FOR 21 DAYS, PO
     Route: 048
     Dates: start: 20111004

REACTIONS (4)
  - HEADACHE [None]
  - VIRAL INFECTION [None]
  - ANAEMIA [None]
  - DIZZINESS [None]
